FAERS Safety Report 7079843-4 (Version None)
Quarter: 2010Q4

REPORT INFORMATION
  Report Type: 
  Country: None (occurrence: None)
  Receive Date: 20101102
  Receipt Date: 20101020
  Transmission Date: 20110411
  Serious: Yes (Hospitalization, Other)
  Sender: FDA-Public Use
  Company Number: JP-ELI_LILLY_AND_COMPANY-JP200907004940

PATIENT
  Age: 36 Year
  Sex: Female

DRUGS (1)
  1. GEMZAR [Suspect]
     Indication: BILE DUCT CANCER
     Route: 042

REACTIONS (2)
  - CHOLANGITIS [None]
  - MALIGNANT NEOPLASM PROGRESSION [None]
